FAERS Safety Report 9487594 (Version 2)
Quarter: 2013Q3

REPORT INFORMATION
  Report Type: Spontaneous
  Country: US (occurrence: US)
  Receive Date: 20130725
  Receipt Date: 20130725
  Transmission Date: 20140515
  Serious: Yes (Hospitalization)
  Sender: FDA-Public Use
  Company Number: US-GLAXOSMITHKLINE-A0818026A

PATIENT
  Sex: Male

DRUGS (10)
  1. AVANDIA [Suspect]
     Indication: DIABETES MELLITUS
     Route: 048
     Dates: start: 20041208, end: 20061219
  2. AMARYL [Concomitant]
  3. METFORMIN [Concomitant]
  4. LASIX [Concomitant]
  5. LOPRESSOR [Concomitant]
  6. NEURONTIN [Concomitant]
  7. POTASSIUM [Concomitant]
  8. PROTONIX [Concomitant]
  9. ZESTRIL [Concomitant]
  10. AMIODARONE [Concomitant]

REACTIONS (1)
  - Cardiac failure congestive [Unknown]
